FAERS Safety Report 22232223 (Version 1)
Quarter: 2023Q2

REPORT INFORMATION
  Report Type: Spontaneous
  Country: US (occurrence: None)
  Receive Date: 20230420
  Receipt Date: 20230420
  Transmission Date: 20230721
  Serious: No
  Sender: FDA-Public Use
  Company Number: US-ROCHE-3259667

PATIENT
  Sex: Female

DRUGS (4)
  1. ESBRIET [Suspect]
     Active Substance: PIRFENIDONE
     Indication: Rheumatoid arthritis
     Dosage: TAKE 1 TABLET BY MOUTH THREE TIMES A DAY WITH FOOD
     Route: 048
  2. METHIMAZOLE [Concomitant]
     Active Substance: METHIMAZOLE
  3. PRIMIDONE [Concomitant]
     Active Substance: PRIMIDONE
  4. PROPRANOLOL [Concomitant]
     Active Substance: PROPRANOLOL HYDROCHLORIDE

REACTIONS (3)
  - Product dose omission issue [Unknown]
  - Off label use [Unknown]
  - No adverse event [Unknown]
